FAERS Safety Report 14100474 (Version 2)
Quarter: 2017Q4

REPORT INFORMATION
  Report Type: Report from Study
  Country: US (occurrence: US)
  Receive Date: 20171017
  Receipt Date: 20171113
  Transmission Date: 20180321
  Serious: No
  Sender: FDA-Public Use
  Company Number: PHEH2017US033574

PATIENT
  Sex: Female
  Weight: 80.73 kg

DRUGS (2)
  1. COSENTYX [Suspect]
     Active Substance: SECUKINUMAB
     Indication: PSORIASIS
     Dosage: 300 MG (TWO PENS), QMO
     Route: 058
  2. COSENTYX [Suspect]
     Active Substance: SECUKINUMAB
     Indication: PSORIATIC ARTHROPATHY
     Dosage: 150 MG, QMO (ONE PEN)
     Route: 058
     Dates: start: 20171004

REACTIONS (2)
  - Ill-defined disorder [Recovered/Resolved]
  - Injection site bruising [Unknown]
